FAERS Safety Report 19598488 (Version 4)
Quarter: 2021Q4

REPORT INFORMATION
  Report Type: Spontaneous
  Country: CH (occurrence: CH)
  Receive Date: 20210723
  Receipt Date: 20211003
  Transmission Date: 20220303
  Serious: Yes (Hospitalization, Disabling, Other)
  Sender: FDA-Public Use
  Company Number: NVSC2021CH165757

PATIENT
  Sex: Female

DRUGS (9)
  1. PIQRAY [Suspect]
     Active Substance: ALPELISIB
     Indication: Breast cancer
     Dosage: 300 MG
     Route: 048
     Dates: start: 20210426, end: 20210512
  2. PIQRAY [Suspect]
     Active Substance: ALPELISIB
     Dosage: 300 MG
     Route: 048
     Dates: start: 20210526, end: 20210528
  3. PIQRAY [Suspect]
     Active Substance: ALPELISIB
     Dosage: 150 MG, QD
     Route: 048
     Dates: start: 20210531, end: 20210604
  4. PIQRAY [Suspect]
     Active Substance: ALPELISIB
     Dosage: 250 MG
     Route: 048
     Dates: start: 20210604, end: 20210608
  5. FULVESTRANT [Suspect]
     Active Substance: FULVESTRANT
     Indication: Breast cancer
     Dosage: 500 MG, EVERY TWO WEEKS FIRST SHOT, THEN EVERY 4 WEEKS
     Route: 030
     Dates: start: 20210426, end: 20210613
  6. FULVESTRANT [Suspect]
     Active Substance: FULVESTRANT
     Dosage: UNK
     Route: 065
     Dates: start: 20210624
  7. FULVESTRANT [Suspect]
     Active Substance: FULVESTRANT
     Dosage: UNK
     Route: 065
     Dates: start: 20210723
  8. ZOLADEX [Concomitant]
     Active Substance: GOSERELIN ACETATE
     Indication: Product used for unknown indication
     Dosage: UNK
     Route: 065
     Dates: start: 20210426
  9. VISCUM ALBUM FRUITING TOP [Concomitant]
     Active Substance: VISCUM ALBUM FRUITING TOP
     Indication: Product used for unknown indication
     Dosage: UNK
     Route: 058

REACTIONS (10)
  - Gastric ulcer haemorrhage [Recovered/Resolved]
  - Abdominal pain upper [Recovered/Resolved with Sequelae]
  - Gastric disorder [Recovered/Resolved with Sequelae]
  - SARS-CoV-2 test positive [Recovered/Resolved]
  - Pyrexia [Unknown]
  - Myalgia [Unknown]
  - Fatigue [Unknown]
  - Skin burning sensation [Recovered/Resolved]
  - Abdominal pain [Recovered/Resolved]
  - Product use issue [Unknown]

NARRATIVE: CASE EVENT DATE: 20210430
